FAERS Safety Report 9846959 (Version 3)
Quarter: 2014Q2

REPORT INFORMATION
  Report Type: Spontaneous
  Country: US (occurrence: US)
  Receive Date: 20140127
  Receipt Date: 20140515
  Transmission Date: 20141212
  Serious: Yes (Death, Hospitalization)
  Sender: FDA-Public Use
  Company Number: US-INCYTE CORPORATION-2014IN000140

PATIENT
  Age: 67 Year
  Sex: Male

DRUGS (19)
  1. JAKAFI [Suspect]
     Indication: MYELOFIBROSIS
     Dosage: 10 MG, BID
     Route: 048
     Dates: start: 20130504, end: 2013
  2. JAKAFI [Suspect]
     Dosage: 15 MG, BID
     Dates: start: 2013, end: 20131230
  3. COREG [Concomitant]
  4. PROTONIX [Concomitant]
  5. PROCARDIA XL                     /00340701/ [Concomitant]
  6. CRESTOR [Concomitant]
  7. ALLOPURINOL [Concomitant]
  8. ALBUTEROL                          /00139501/ [Concomitant]
  9. TRAMADOL [Concomitant]
  10. HYDRALAZINE [Concomitant]
  11. HYDREA [Concomitant]
  12. ZINC SULPHATE [Concomitant]
  13. POTASSIUM CHLORIDE [Concomitant]
  14. PLAVIX [Concomitant]
  15. ISOSORBIDE MONONITRATE [Concomitant]
  16. VALTREX [Concomitant]
  17. ZYRTEC [Concomitant]
  18. METOLAZONE [Concomitant]
  19. DACOGEN [Concomitant]

REACTIONS (3)
  - Acute myeloid leukaemia [Fatal]
  - Dyspnoea [Not Recovered/Not Resolved]
  - Blood pressure increased [Not Recovered/Not Resolved]
